FAERS Safety Report 5695055-0 (Version None)
Quarter: 2008Q2

REPORT INFORMATION
  Report Type: 
  Country: None (occurrence: None)
  Receive Date: 20080404
  Receipt Date: 20080324
  Transmission Date: 20081010
  Serious: Yes (Other)
  Sender: FDA-Public Use
  Company Number: US-PFIZER INC-2008015004

PATIENT
  Sex: Male
  Weight: 107 kg

DRUGS (16)
  1. CHANTIX [Suspect]
     Indication: SMOKING CESSATION THERAPY
  2. ALCOHOL [Suspect]
  3. ACETYLSALICYLIC ACID SRT [Concomitant]
  4. POTASSIUM CHLORIDE [Concomitant]
  5. FUROSEMIDE [Concomitant]
  6. LEVOTHYROXINE SODIUM [Concomitant]
  7. METOPROLOL TARTRATE [Concomitant]
  8. PLAVIX [Concomitant]
  9. GABAPENTIN [Concomitant]
  10. VITAMIN CAP [Concomitant]
  11. SIMVASTATIN [Concomitant]
  12. CLONAZEPAM [Concomitant]
  13. RANITIDINE [Concomitant]
  14. PAROXETINE HCL [Concomitant]
  15. NORTRIPTYLINE HCL [Concomitant]
  16. ALEVE [Concomitant]

REACTIONS (10)
  - ALCOHOL WITHDRAWAL SYNDROME [None]
  - CONTUSION [None]
  - CONVULSION [None]
  - GLOSSODYNIA [None]
  - HYPERHIDROSIS [None]
  - PARAESTHESIA ORAL [None]
  - SNORING [None]
  - SWOLLEN TONGUE [None]
  - TONGUE DISORDER [None]
  - TREMOR [None]
